FAERS Safety Report 4664872-8 (Version None)
Quarter: 2005Q2

REPORT INFORMATION
  Report Type: 
  Country: None (occurrence: None)
  Receive Date: 20050517
  Receipt Date: 20050517
  Transmission Date: 20051028
  Serious: Yes (Other)
  Sender: FDA-Public Use
  Company Number: None

PATIENT
  Age: 46 Year
  Sex: Male
  Weight: 112.4 kg

DRUGS (1)
  1. CLONAZEPAM [Suspect]

REACTIONS (2)
  - HYPOXIA [None]
  - LOSS OF CONSCIOUSNESS [None]
